FAERS Safety Report 21048831 (Version 2)
Quarter: 2022Q3

REPORT INFORMATION
  Report Type: Spontaneous
  Country: FR (occurrence: FR)
  Receive Date: 20220706
  Receipt Date: 20220713
  Transmission Date: 20221026
  Serious: Yes (Life-Threatening)
  Sender: FDA-Public Use
  Company Number: FR-NORDICGR-2022001635

PATIENT

DRUGS (1)
  1. APROTININ [Suspect]
     Active Substance: APROTININ
     Indication: Product use in unapproved indication
     Dosage: TEST DOSE
     Route: 042

REACTIONS (5)
  - Hypotension [Recovered/Resolved]
  - Cardiac arrest [Recovered/Resolved]
  - Off label use [Unknown]
  - Contraindicated product administered [Unknown]
  - Off label use [None]
